FAERS Safety Report 10205175 (Version 1)
Quarter: 2014Q2

REPORT INFORMATION
  Report Type: Spontaneous
  Country: US (occurrence: US)
  Receive Date: 20140529
  Receipt Date: 20140529
  Transmission Date: 20141212
  Serious: Yes (Hospitalization, Other)
  Sender: FDA-Public Use
  Company Number: US-TEVA-484368USA

PATIENT
  Age: 77 Year
  Sex: Male

DRUGS (7)
  1. AMIODARONE [Suspect]
  2. LANTUS [Concomitant]
  3. LISINOPRIL [Concomitant]
  4. SPIRONOLACTONE [Concomitant]
  5. METOLAZONE [Concomitant]
  6. METOPROLOL [Concomitant]
  7. TORSEMIDE [Concomitant]

REACTIONS (12)
  - Loss of consciousness [Unknown]
  - Atrial flutter [Unknown]
  - White blood cell count increased [Unknown]
  - Heart rate irregular [Unknown]
  - Adverse event [Unknown]
  - Wheezing [Unknown]
  - Peripheral swelling [Unknown]
  - Chromaturia [Unknown]
  - Nausea [Unknown]
  - Retching [Unknown]
  - Regurgitation [Unknown]
  - Constipation [Unknown]
